FAERS Safety Report 23135588 (Version 5)
Quarter: 2024Q4

REPORT INFORMATION
  Report Type: Spontaneous
  Country: CA (occurrence: CA)
  Receive Date: 20231101
  Receipt Date: 20241128
  Transmission Date: 20250115
  Serious: Yes (Other)
  Sender: PFIZER
  Company Number: CA-PFIZER INC-2020422785

PATIENT
  Age: 45 Year
  Sex: Male
  Weight: 100 kg

DRUGS (24)
  1. RUXIENCE [Suspect]
     Active Substance: RITUXIMAB-PVVR
     Indication: Granulomatosis with polyangiitis
     Dosage: 1000 MG AT WEEK 0 AND 2
     Route: 042
  2. RUXIENCE [Suspect]
     Active Substance: RITUXIMAB-PVVR
     Dosage: 500 MG, SINGLE, X 1 DOSE
     Route: 042
     Dates: start: 20201215, end: 20201215
  3. RUXIENCE [Suspect]
     Active Substance: RITUXIMAB-PVVR
     Dosage: 500 MG, SINGLE, X 1 DOSE
     Route: 042
     Dates: start: 20210615, end: 20210615
  4. RUXIENCE [Suspect]
     Active Substance: RITUXIMAB-PVVR
     Dosage: 500 MG, SINGLE, X 1 DOSE
     Route: 042
     Dates: start: 20211221, end: 20211221
  5. RUXIENCE [Suspect]
     Active Substance: RITUXIMAB-PVVR
     Dosage: 500 MG, SINGLE, X 1 DOSE
     Route: 042
     Dates: start: 20220610, end: 20220610
  6. RUXIENCE [Suspect]
     Active Substance: RITUXIMAB-PVVR
     Dosage: 500 MG, SINGLE, SINGLE DOSE, EVERY 6 MONTH
     Route: 042
     Dates: start: 20230116, end: 20230116
  7. RUXIENCE [Suspect]
     Active Substance: RITUXIMAB-PVVR
     Dosage: 500 MG, DAY 1 RETREATMENT EVERY 6 MONTH
     Route: 042
     Dates: start: 20231025, end: 20231025
  8. RUXIENCE [Suspect]
     Active Substance: RITUXIMAB-PVVR
     Dosage: 500 MG, EVERY 6 MONTH
     Route: 042
     Dates: start: 20240424, end: 20240424
  9. RUXIENCE [Suspect]
     Active Substance: RITUXIMAB-PVVR
     Dosage: 500 MG, SUBSEQUENT DAY 1, (EVERY 6 MONTH)
     Route: 042
     Dates: start: 20241028, end: 20241028
  10. COLCHICINE [Concomitant]
     Active Substance: COLCHICINE
     Dosage: 1 DF
     Route: 065
  11. DESLORATADINE [Concomitant]
     Active Substance: DESLORATADINE
     Dosage: UNK
  12. FOLIC ACID [Concomitant]
     Active Substance: FOLIC ACID
     Dosage: 1 DF
     Route: 065
  13. LOSARTAN [Concomitant]
     Active Substance: LOSARTAN
     Dosage: UNK
  14. METHOTREXATE [Concomitant]
     Active Substance: METHOTREXATE
     Dosage: 12.5 MG, WEEKLY
     Route: 058
  15. METHOTREXATE [Concomitant]
     Active Substance: METHOTREXATE
     Dosage: 1 DF, DOSAGE INFORMATION IS UNKNOWN
     Route: 065
  16. PANTOPRAZOLE [Concomitant]
     Active Substance: PANTOPRAZOLE
     Dosage: 1 DF
     Route: 065
  17. PREDNISONE [Concomitant]
     Active Substance: PREDNISONE
     Dosage: 1 DF
     Route: 065
  18. PREDNISONE [Concomitant]
     Active Substance: PREDNISONE
     Dosage: 50 MG, FOR 1 WEEK
  19. PREDNISONE [Concomitant]
     Active Substance: PREDNISONE
     Dosage: 25 MG, FOR FOR 6 DAYS
  20. PREDNISONE [Concomitant]
     Active Substance: PREDNISONE
     Dosage: 3 MG, DAILY (TAPERED)
  21. SEPTRA DS [Concomitant]
     Active Substance: SULFAMETHOXAZOLE\TRIMETHOPRIM
     Dosage: 1 DF 3X/WEEK
     Route: 065
  22. SEPTRA DS [Concomitant]
     Active Substance: SULFAMETHOXAZOLE\TRIMETHOPRIM
     Dosage: 1 DF
     Route: 065
  23. SULFATRIM [Concomitant]
     Active Substance: SULFAMETHOXAZOLE\TRIMETHOPRIM
     Dosage: UNK, 3 DAYS A WEEK FOR 1 YEAR
     Route: 065
  24. TREXONE [Concomitant]
     Dosage: UNK

REACTIONS (8)
  - Neuralgia [Not Recovered/Not Resolved]
  - Condition aggravated [Recovered/Resolved]
  - Sleep disorder [Recovering/Resolving]
  - Affective disorder [Recovering/Resolving]
  - Gout [Recovering/Resolving]
  - Off label use [Unknown]
  - Off label use [Unknown]
  - Intentional product use issue [Unknown]

NARRATIVE: CASE EVENT DATE: 20210615
